FAERS Safety Report 4279969-4 (Version None)
Quarter: 2004Q1

REPORT INFORMATION
  Report Type: 
  Country: None (occurrence: None)
  Receive Date: 20040127
  Receipt Date: 20040127
  Transmission Date: 20041129
  Serious: Yes (Other)
  Sender: FDA-Public Use
  Company Number: None

PATIENT
  Sex: Male
  Weight: 93.8946 kg

DRUGS (1)
  1. ALLOGRAFT [Suspect]

REACTIONS (6)
  - CITROBACTER INFECTION [None]
  - COMPLICATIONS OF TRANSPLANT SURGERY [None]
  - FRACTURE [None]
  - PAIN [None]
  - PURULENCE [None]
  - SEPSIS [None]
